FAERS Safety Report 20965526 (Version 2)
Quarter: 2022Q2

REPORT INFORMATION
  Report Type: Other
  Country: DE (occurrence: DE)
  Receive Date: 20220616
  Receipt Date: 20220625
  Transmission Date: 20220721
  Serious: Yes (Other)
  Sender: FDA-Public Use
  Company Number: DE-CELLTRION INC.-2022DE008895

PATIENT

DRUGS (8)
  1. RITUXIMAB [Suspect]
     Active Substance: RITUXIMAB
     Indication: Diffuse large B-cell lymphoma
     Dosage: 2ND LINE, R-GEMOX, 80%, 5 CYCLES (6 MONTHS)
     Route: 065
     Dates: start: 20180724, end: 201901
  2. RITUXIMAB [Suspect]
     Active Substance: RITUXIMAB
     Dosage: R-GEMOX, 1 CYCLE
     Route: 065
     Dates: start: 201904
  3. RITUXIMAB [Suspect]
     Active Substance: RITUXIMAB
     Dosage: R-DHA, 1 CYCLE
     Route: 065
     Dates: start: 201903
  4. MABTHERA [Suspect]
     Active Substance: RITUXIMAB
     Indication: Diffuse large B-cell lymphoma
     Dosage: 1ST LINE R-CHOP, 3 CYCLES
     Route: 065
     Dates: start: 20180407, end: 20180523
  5. GEMCITABINE HYDROCHLORIDE\OXALIPLATIN [Suspect]
     Active Substance: GEMCITABINE HYDROCHLORIDE\OXALIPLATIN
     Indication: Diffuse large B-cell lymphoma
     Dosage: 2ND LINE, R-GEMOX, 80%, 5 CYCLES (6 MONTHS)
     Route: 065
     Dates: start: 20180724, end: 201901
  6. GEMCITABINE HYDROCHLORIDE\OXALIPLATIN [Suspect]
     Active Substance: GEMCITABINE HYDROCHLORIDE\OXALIPLATIN
     Dosage: R-GEMOX, 1 CYCLE
     Route: 065
     Dates: start: 201904
  7. CYCLOPHOSPHAMIDE\DOXORUBICIN\PREDNISONE\VINCRISTINE [Suspect]
     Active Substance: CYCLOPHOSPHAMIDE\DOXORUBICIN\PREDNISONE\VINCRISTINE
     Indication: Diffuse large B-cell lymphoma
     Dosage: 1ST LINE R-CHOP, 3 CYCLES
     Route: 065
     Dates: start: 20180407, end: 20180523
  8. DIETARY SUPPLEMENT [Suspect]
     Active Substance: DIETARY SUPPLEMENT
     Indication: Diffuse large B-cell lymphoma
     Dosage: R-DHA, 1 CYCLE
     Route: 065
     Dates: start: 201903

REACTIONS (5)
  - Disease progression [Unknown]
  - Neuropathy peripheral [Unknown]
  - Pneumonia [Unknown]
  - Nerve compression [Unknown]
  - Infection [Unknown]
